FAERS Safety Report 5283930-0 (Version None)
Quarter: 2007Q2

REPORT INFORMATION
  Report Type: 
  Country: None (occurrence: None)
  Receive Date: 20070402
  Receipt Date: 20070321
  Transmission Date: 20071010
  Serious: Yes (Other)
  Sender: FDA-Public Use
  Company Number: US-PFIZER INC-2007008085

PATIENT
  Sex: Female
  Weight: 63.5 kg

DRUGS (5)
  1. CHANTIX [Suspect]
     Indication: SMOKING CESSATION THERAPY
     Route: 048
     Dates: start: 20061201, end: 20061201
  2. FOSAMAX [Concomitant]
  3. PAXIL [Concomitant]
  4. ZOCOR [Concomitant]
  5. NORVASC [Concomitant]

REACTIONS (16)
  - ARTHRALGIA [None]
  - DIARRHOEA [None]
  - DISCOMFORT [None]
  - DIZZINESS [None]
  - GAIT DISTURBANCE [None]
  - GASTROENTERITIS VIRAL [None]
  - ISCHAEMIA [None]
  - MICROANGIOPATHY [None]
  - MIDDLE EAR EFFUSION [None]
  - MYALGIA [None]
  - PAIN [None]
  - TEMPERATURE REGULATION DISORDER [None]
  - TYMPANIC MEMBRANE DISORDER [None]
  - VERTIGO [None]
  - VIRAL INFECTION [None]
  - VOMITING [None]
